FAERS Safety Report 7210919-4 (Version None)
Quarter: 2011Q1

REPORT INFORMATION
  Report Type: 
  Country: None (occurrence: None)
  Receive Date: 20110105
  Receipt Date: 20101231
  Transmission Date: 20110831
  Serious: Yes (Death)
  Sender: FDA-Public Use
  Company Number: US-ASTRAZENECA-2011SE00253

PATIENT
  Age: 77 Year
  Sex: Female

DRUGS (10)
  1. LEVOTHYROXINE [Suspect]
     Route: 048
  2. VENLAFAXINE [Suspect]
     Route: 048
  3. DILTIAZEM [Suspect]
     Route: 048
  4. BENZODIAZEPINE [Suspect]
     Route: 048
  5. CHLORDIAZEPOXIDE [Suspect]
     Route: 048
  6. HYDROCHLOROTHIAZIDE [Suspect]
     Route: 048
  7. LISINOPRIL [Suspect]
     Route: 048
  8. SULFONUREA AND RELATED [Suspect]
     Route: 048
  9. SIMVASTATIN [Suspect]
     Route: 048
  10. DOXAZOSIN MESYLATE [Suspect]
     Route: 048

REACTIONS (3)
  - COMPLETED SUICIDE [None]
  - CARDIO-RESPIRATORY ARREST [None]
  - TOXICITY TO VARIOUS AGENTS [None]
